FAERS Safety Report 11242909 (Version 3)
Quarter: 2015Q4

REPORT INFORMATION
  Report Type: Spontaneous
  Country: JP (occurrence: JP)
  Receive Date: 20150707
  Receipt Date: 20151223
  Transmission Date: 20160304
  Serious: Yes (Hospitalization)
  Sender: FDA-Public Use
  Company Number: JP-ACTELION-A-CH2015-120145

PATIENT
  Age: 2 Year
  Sex: Male
  Weight: 10 kg

DRUGS (16)
  1. SODIUM ALGINATE [Concomitant]
     Active Substance: SODIUM ALGINATE
  2. SULFAMETHOXAZOLE AND TRIMETHOPRIM [Concomitant]
     Active Substance: SULFAMETHOXAZOLE\TRIMETHOPRIM
  3. BICARBONATE [Concomitant]
     Active Substance: BICARBONATE ION
  4. BRAZAVES [Suspect]
     Active Substance: MIGLUSTAT
     Dosage: 100 MG, OD
     Route: 048
     Dates: start: 20150428, end: 20150530
  5. TIZANIDINE. [Concomitant]
     Active Substance: TIZANIDINE
  6. HYALURONATE NA [Concomitant]
  7. AMMONIUM GLYCYRRHIZINATE W/DL-METHIONINE/GLYC [Concomitant]
  8. BUDESONIDE. [Concomitant]
     Active Substance: BUDESONIDE
  9. BRAZAVES [Suspect]
     Active Substance: MIGLUSTAT
     Indication: NIEMANN-PICK DISEASE
     Dosage: 100 MG, BID
     Route: 048
     Dates: start: 20150531
  10. TACROLIMUS. [Concomitant]
     Active Substance: TACROLIMUS
  11. LANSOPRAZOLE. [Concomitant]
     Active Substance: LANSOPRAZOLE
  12. CARBOCISTEINE [Concomitant]
     Active Substance: CARBOCYSTEINE
  13. AMBROXOL [Concomitant]
     Active Substance: AMBROXOL
  14. SODIUM GUALENATE HYDRATE [Concomitant]
     Active Substance: SODIUM GUALENATE MONOHYDRATE
  15. MONTELUKAST [Concomitant]
     Active Substance: MONTELUKAST SODIUM
  16. URSODEOXYCHOLIC ACID [Concomitant]
     Active Substance: URSODIOL

REACTIONS (8)
  - Status epilepticus [Recovering/Resolving]
  - Pyrexia [Recovering/Resolving]
  - Liver transplant rejection [Unknown]
  - Hepatic enzyme increased [Recovering/Resolving]
  - Clonic convulsion [Recovering/Resolving]
  - Aspartate aminotransferase increased [Recovering/Resolving]
  - Epilepsy [Recovering/Resolving]
  - Alanine aminotransferase increased [Recovering/Resolving]

NARRATIVE: CASE EVENT DATE: 20150617
